FAERS Safety Report 8868682 (Version 2)
Quarter: 2013Q1

REPORT INFORMATION
  Report Type: Report from Study
  Country: JP (occurrence: JP)
  Receive Date: 20121024
  Receipt Date: 20130212
  Transmission Date: 20140127
  Serious: Yes (Hospitalization, Other)
  Sender: FDA-Public Use
  Company Number: JP-009507513-2012SP027860

PATIENT
  Age: 64 Year
  Sex: Male
  Weight: 57 kg

DRUGS (17)
  1. PEGINTRON [Suspect]
     Indication: HEPATITIS C
     Dosage: 1.5 MICROGRAM PER KILOGRAM, QW
     Route: 058
     Dates: start: 20120321, end: 20120829
  2. REBETOL [Suspect]
     Indication: CHRONIC HEPATITIS C
     Dosage: 600 MG, QD
     Route: 048
     Dates: start: 20120321, end: 20120423
  3. REBETOL [Suspect]
     Dosage: 200 MG, QD
     Route: 048
     Dates: start: 20120423, end: 20120501
  4. REBETOL [Suspect]
     Dosage: 200 MG, QD
     Route: 048
     Dates: start: 20120502, end: 20120509
  5. REBETOL [Suspect]
     Dosage: 200 MG, QD
     Route: 048
     Dates: start: 20120530, end: 20120601
  6. REBETOL [Suspect]
     Dosage: 200 MG, QD
     Route: 048
     Dates: start: 20120627, end: 20120829
  7. TELAVIC [Suspect]
     Indication: CHRONIC HEPATITIS C
     Dosage: 1500 MG, QD
     Route: 048
     Dates: start: 20120321, end: 20120613
  8. TELAVIC [Suspect]
     Dosage: 2250 MG, QD
     Route: 048
     Dates: end: 20120613
  9. JANUVIA [Concomitant]
     Indication: DIABETES MELLITUS
     Dosage: 50 MG, QD, FORMULATION: POR
     Route: 048
  10. URDESTON [Concomitant]
     Indication: CHRONIC HEPATITIS C
     Dosage: FORMULATION: POR
     Route: 048
  11. OMEPRAL [Concomitant]
     Indication: GASTRITIS
     Dosage: FORMULATION: POR
     Route: 048
  12. OLMETEC [Concomitant]
     Indication: HYPERTENSION
     Dosage: FORMULATION: POR
     Route: 048
     Dates: end: 20120423
  13. OLMETEC [Concomitant]
     Dosage: 20 UNK, UNK
     Route: 048
  14. VOGLIBOSE [Concomitant]
     Indication: DIABETES MELLITUS
     Dosage: FORMULATION: POR. TRADE NAME UNKNOWN
     Route: 048
  15. PROMAC (POLAPREZINC) [Concomitant]
     Indication: GASTRIC ULCER
     Dosage: FORMULATION: POR
     Route: 048
  16. GLYCORAN [Concomitant]
     Indication: DIABETES MELLITUS
     Dosage: FORMULATION: POR
     Route: 048
  17. BUTIKINON [Concomitant]
     Indication: GASTRITIS
     Dosage: 300 MG, QD
     Route: 048

REACTIONS (5)
  - Dermatitis exfoliative [Recovering/Resolving]
  - Loss of consciousness [Recovered/Resolved]
  - Anaemia [Not Recovered/Not Resolved]
  - Loss of consciousness [Recovered/Resolved]
  - Loss of consciousness [Recovered/Resolved]
